FAERS Safety Report 10174596 (Version 1)
Quarter: 2014Q2

REPORT INFORMATION
  Report Type: Spontaneous
  Country: US (occurrence: None)
  Receive Date: 20140416
  Receipt Date: 20140416
  Transmission Date: 20141212
  Serious: No
  Sender: FDA-Public Use
  Company Number: 163-POMAL-14010413

PATIENT
  Age: 57 Year
  Sex: Female
  Weight: 56.25 kg

DRUGS (10)
  1. POMALYST (POMALIDOMIDE) (2 MILLIGRAM, CAPSULES) [Suspect]
     Indication: PLASMA CELL MYELOMA
     Dosage: 21 IN 21 D
     Route: 048
     Dates: start: 20131220, end: 20131231
  2. DEXAMETHASONE (DEXAMETHASONE) [Concomitant]
  3. NORVASC (AMLODIPINE BESILATE) [Concomitant]
  4. COMBIVENT (COMBIVENT) [Concomitant]
  5. ACYCLOVIR (ACICLOVIR) (ACICLOVIR) [Concomitant]
  6. POTASSIUM (POTASSIUM) [Concomitant]
  7. ATIVAN (LORAZEPAM) [Concomitant]
  8. SYMBICORT (SYMBICORT TURBUHALER ^DRACO^) [Concomitant]
  9. VICODIN (VICODIN) [Concomitant]
  10. SODIUM CARBONATE (SODIUM CARBONATE ANHYDROUS) [Concomitant]

REACTIONS (6)
  - Petechiae [None]
  - Pain in extremity [None]
  - Epistaxis [None]
  - Rash [None]
  - Peripheral swelling [None]
  - Nausea [None]
